FAERS Safety Report 9896335 (Version 1)
Quarter: 2014Q1

REPORT INFORMATION
  Report Type: Spontaneous
  Country: US (occurrence: US)
  Receive Date: 20140213
  Receipt Date: 20140213
  Transmission Date: 20141002
  Serious: No
  Sender: FDA-Public Use
  Company Number: US-BRISTOL-MYERS SQUIBB COMPANY-19073964

PATIENT
  Age: 67 Year
  Sex: Female
  Weight: 72.56 kg

DRUGS (13)
  1. ABATACEPT SUBQ INJECTION 125MG/ML [Suspect]
     Dosage: 1DF:125MG/ML
     Route: 058
  2. METHOTREXATE [Concomitant]
     Dosage: 1DF:25MG/ML INJ
  3. ARALEN HCL [Concomitant]
     Dosage: TABS
  4. FOLIC ACID [Concomitant]
     Dosage: TABS
  5. PREDNISONE [Concomitant]
     Dosage: TABS
  6. LIPITOR [Concomitant]
     Dosage: TABS
  7. NEXIUM [Concomitant]
     Dosage: CAPS
  8. PROBIOTICA [Concomitant]
     Dosage: CAPS
  9. FISH OIL [Concomitant]
     Dosage: CAPS
  10. VITAMIN C [Concomitant]
     Dosage: CHEWABLE
  11. CALCIUM [Concomitant]
     Dosage: 1DF:500 UNITS NOS TABS
  12. ZINC [Concomitant]
     Dosage: CAPS
  13. ECHINACEA [Concomitant]
     Dosage: TABS

REACTIONS (1)
  - Tongue blistering [Recovered/Resolved]
